FAERS Safety Report 7819342-2 (Version None)
Quarter: 2011Q4

REPORT INFORMATION
  Report Type: 
  Country: None (occurrence: None)
  Receive Date: 20111018
  Receipt Date: 20101004
  Transmission Date: 20120403
  Serious: No
  Sender: FDA-Public Use
  Company Number: US-ASTRAZENECA-2010SE46592

PATIENT
  Age: 687 Month
  Sex: Female
  Weight: 95.3 kg

DRUGS (18)
  1. SINEMET CR [Concomitant]
     Indication: PARKINSON'S DISEASE
     Dosage: 25/100 MG BID
  2. LORATADINE [Concomitant]
  3. ASPIRIN [Concomitant]
  4. PRILOSEC [Concomitant]
  5. DOXEPIN [Concomitant]
     Indication: DEPRESSION
     Dosage: HS
  6. CITALOPRAM HYDROBROMIDE [Concomitant]
     Dosage: BID
  7. SYNTHROID [Concomitant]
     Dosage: 0.005 MCG DIALY
  8. LISINOPRIL [Concomitant]
     Indication: BLOOD PRESSURE
  9. NEURONTIN [Concomitant]
  10. NORVASC [Concomitant]
     Indication: BLOOD PRESSURE
  11. PROAIR HFA [Concomitant]
  12. ALBUTEROL [Concomitant]
  13. REQUIP XL [Concomitant]
  14. SPIRIVA [Concomitant]
  15. CARVEDILOL [Concomitant]
     Indication: BLOOD PRESSURE
  16. B12 SHOT [Concomitant]
     Dosage: ONCE PER MONTH
  17. SYMBICORT [Suspect]
     Indication: CHRONIC OBSTRUCTIVE PULMONARY DISEASE
     Dosage: UNKNOWN DOSE BID
     Route: 055
     Dates: start: 20080101, end: 20100701
  18. PULMICORT [Suspect]
     Indication: ASTHMA
     Dosage: DAILY
     Route: 055

REACTIONS (5)
  - PALPITATIONS [None]
  - RESPIRATORY DISTRESS [None]
  - DYSPNOEA [None]
  - HYPERTENSION [None]
  - DRUG DOSE OMISSION [None]
